FAERS Safety Report 18517270 (Version 3)
Quarter: 2021Q2

REPORT INFORMATION
  Report Type: Spontaneous
  Country: US (occurrence: US)
  Receive Date: 20201118
  Receipt Date: 20210601
  Transmission Date: 20210717
  Serious: Yes (Hospitalization, Other)
  Sender: FDA-Public Use
  Company Number: US-PFIZER INC-2020451894

PATIENT
  Age: 73 Year
  Sex: Female

DRUGS (2)
  1. XELJANZ [Suspect]
     Active Substance: TOFACITINIB CITRATE
     Dosage: 5 MG, 1X/DAY
     Dates: start: 20201114, end: 20210510
  2. XELJANZ [Suspect]
     Active Substance: TOFACITINIB CITRATE
     Dosage: UNK
     Dates: start: 20201111

REACTIONS (13)
  - Head injury [Unknown]
  - Renal disorder [Unknown]
  - Rib fracture [Unknown]
  - Peripheral swelling [Unknown]
  - Headache [Unknown]
  - Weight increased [Unknown]
  - Abdominal discomfort [Unknown]
  - Depression [Unknown]
  - Off label use [Unknown]
  - Accident [Unknown]
  - Fatigue [Unknown]
  - Pain [Unknown]
  - Blood potassium increased [Unknown]

NARRATIVE: CASE EVENT DATE: 2020
